FAERS Safety Report 7907441-6 (Version None)
Quarter: 2011Q4

REPORT INFORMATION
  Report Type: 
  Country: None (occurrence: None)
  Receive Date: 20111110
  Receipt Date: 20111103
  Transmission Date: 20120403
  Serious: Yes (Hospitalization)
  Sender: FDA-Public Use
  Company Number: NL-SANOFI-AVENTIS-2011SA051010

PATIENT
  Age: 23 Year
  Sex: Male
  Weight: 69 kg

DRUGS (4)
  1. VENLAFAXINE [Concomitant]
     Route: 048
     Dates: start: 20110420
  2. LANTUS [Suspect]
     Route: 065
     Dates: start: 20110701
  3. LANTUS [Suspect]
     Route: 065
     Dates: start: 20110701, end: 20110701
  4. LANTUS [Suspect]
     Route: 065
     Dates: start: 20031101, end: 20110701

REACTIONS (1)
  - METABOLIC ACIDOSIS [None]
